FAERS Safety Report 19257276 (Version 2)
Quarter: 2021Q2

REPORT INFORMATION
  Report Type: Spontaneous
  Country: DE (occurrence: DE)
  Receive Date: 20210513
  Receipt Date: 20210625
  Transmission Date: 20210717
  Serious: Yes (Hospitalization)
  Sender: FDA-Public Use
  Company Number: DE-ASTRAZENECA-2021A401238

PATIENT
  Sex: Female
  Weight: 72 kg

DRUGS (3)
  1. FORXIGA [Suspect]
     Active Substance: DAPAGLIFLOZIN
     Indication: TYPE 2 DIABETES MELLITUS
     Dosage: UNKNOWN
     Route: 048
  2. FORXIGA [Suspect]
     Active Substance: DAPAGLIFLOZIN
     Indication: TYPE 2 DIABETES MELLITUS
     Route: 048
     Dates: start: 20210301
  3. FORXIGA [Suspect]
     Active Substance: DAPAGLIFLOZIN
     Indication: TYPE 2 DIABETES MELLITUS
     Dosage: UNKNOWN
     Route: 048

REACTIONS (23)
  - Weight decreased [Unknown]
  - Pancreatic steatosis [Unknown]
  - Hypogammaglobulinaemia [Unknown]
  - Meniscal degeneration [Unknown]
  - Cardiac valve sclerosis [Unknown]
  - Renal cyst [Unknown]
  - Decreased activity [Unknown]
  - Myalgia [Not Recovered/Not Resolved]
  - Intentional product misuse [Unknown]
  - Polymyalgia rheumatica [Recovering/Resolving]
  - Joint effusion [Unknown]
  - Synovial cyst [Unknown]
  - Pain [Unknown]
  - Cartilage injury [Unknown]
  - Drug intolerance [Unknown]
  - Arthralgia [Unknown]
  - Musculoskeletal stiffness [Unknown]
  - Ill-defined disorder [Unknown]
  - Hepatic cyst [Unknown]
  - Joint swelling [Unknown]
  - Oedema peripheral [Unknown]
  - General physical health deterioration [Unknown]
  - Arthropathy [Unknown]
